FAERS Safety Report 10240198 (Version 3)
Quarter: 2014Q3

REPORT INFORMATION
  Report Type: Spontaneous
  Country: US (occurrence: US)
  Receive Date: 20140617
  Receipt Date: 20140820
  Transmission Date: 20150326
  Serious: No
  Sender: FDA-Public Use
  Company Number: US-009507513-1405USA013996

PATIENT
  Sex: Male
  Weight: 93.42 kg

DRUGS (3)
  1. REBETOL [Suspect]
     Active Substance: RIBAVIRIN
     Dosage: UNK
     Route: 048
  2. PEGINTRON [Suspect]
     Active Substance: PEGINTERFERON ALFA-2B
     Indication: CHRONIC HEPATITIS C
     Dosage: 150 MCG, ONCE PER WEEK
     Route: 058
     Dates: start: 20140326
  3. SOVALDI [Concomitant]
     Active Substance: SOFOSBUVIR
     Dosage: UNK

REACTIONS (6)
  - Chills [Not Recovered/Not Resolved]
  - Fatigue [Recovered/Resolved]
  - Injection site pain [Not Recovered/Not Resolved]
  - Injection site rash [Recovered/Resolved]
  - Headache [Recovered/Resolved]
  - Injection site erythema [Recovered/Resolved]

NARRATIVE: CASE EVENT DATE: 2014
